FAERS Safety Report 10346167 (Version 3)
Quarter: 2014Q3

REPORT INFORMATION
  Report Type: Spontaneous
  Country: US (occurrence: US)
  Receive Date: 20140728
  Receipt Date: 20140905
  Transmission Date: 20150326
  Serious: Yes (Other)
  Sender: FDA-Public Use
  Company Number: US-ELI_LILLY_AND_COMPANY-US201405000191

PATIENT
  Sex: Female
  Weight: 98.87 kg

DRUGS (11)
  1. VITAMIN B COMPLEX WITH C [Concomitant]
     Active Substance: ASCORBIC ACID\CALCIUM PANTOTHENATE\CYANOCOBALAMIN\NIACINAMIDE\PYRIDOXINE HYDROCHLORIDE\RIBOFLAVIN\THIAMINE MONONITRATE
  2. NORVASC [Concomitant]
     Active Substance: AMLODIPINE BESYLATE
     Dosage: 10 MG, UNK
     Route: 048
  3. METFORMIN [Concomitant]
     Active Substance: METFORMIN HYDROCHLORIDE
     Dosage: 500 MG, UNK
  4. LISINOPRIL. [Concomitant]
     Active Substance: LISINOPRIL
     Dosage: 2.5 MG, UNK
     Route: 048
  5. HUMALOG [Suspect]
     Active Substance: INSULIN LISPRO
     Indication: TYPE 2 DIABETES MELLITUS
     Dosage: 9 U, TID
     Route: 065
  6. LANTUS [Concomitant]
     Active Substance: INSULIN GLARGINE
     Route: 065
  7. ALLEGRA [Concomitant]
     Active Substance: FEXOFENADINE HYDROCHLORIDE
     Dosage: UNK
  8. MULTIVITAMINS PLUS IRON [Concomitant]
  9. FOLIC ACID. [Concomitant]
     Active Substance: FOLIC ACID
  10. IRON [Concomitant]
     Active Substance: IRON
     Route: 048
  11. DOCUSATE [Concomitant]
     Active Substance: DOCUSATE

REACTIONS (6)
  - Visual acuity reduced [Unknown]
  - Visual field defect [Unknown]
  - Retinal haemorrhage [Unknown]
  - Vitreous haemorrhage [Recovering/Resolving]
  - Diabetic retinopathy [Not Recovered/Not Resolved]
  - Cataract [Unknown]
